FAERS Safety Report 20942601 (Version 2)
Quarter: 2022Q2

REPORT INFORMATION
  Report Type: Report from Study
  Country: US (occurrence: None)
  Receive Date: 20220610
  Receipt Date: 20220622
  Transmission Date: 20220721
  Serious: Yes (Hospitalization)
  Sender: FDA-Public Use
  Company Number: US-Merck Healthcare KGaA-9327812

PATIENT
  Sex: Female
  Weight: 86 kg

DRUGS (8)
  1. REBIF [Suspect]
     Active Substance: INTERFERON BETA-1A
     Indication: Relapsing-remitting multiple sclerosis
     Route: 058
     Dates: start: 20180404
  2. REBIF [Suspect]
     Active Substance: INTERFERON BETA-1A
     Route: 058
     Dates: start: 20201118
  3. REBIF [Suspect]
     Active Substance: INTERFERON BETA-1A
     Route: 058
     Dates: start: 20210715
  4. REBIF [Suspect]
     Active Substance: INTERFERON BETA-1A
     Route: 058
     Dates: start: 20220527, end: 20220607
  5. PRINZIDE [Concomitant]
     Active Substance: HYDROCHLOROTHIAZIDE\LISINOPRIL
     Indication: Product used for unknown indication
     Route: 048
     Dates: start: 20161104
  6. KLONOPIN [Concomitant]
     Active Substance: CLONAZEPAM
     Indication: Anxiety
     Dosage: FOR UPTO 14 DAYS
     Route: 048
     Dates: start: 20150307
  7. KLONOPIN [Concomitant]
     Active Substance: CLONAZEPAM
     Dosage: FOR UPTO 14 DAYS
     Route: 048
     Dates: start: 20210924, end: 20220222
  8. ZESTORETIC [Concomitant]
     Active Substance: HYDROCHLOROTHIAZIDE\LISINOPRIL
     Indication: Product used for unknown indication
     Dosage: 10-12.5 MG
     Route: 048
     Dates: start: 20220222

REACTIONS (11)
  - Tumour marker increased [Not Recovered/Not Resolved]
  - Fallopian tube cyst [Not Recovered/Not Resolved]
  - Infected cyst [Not Recovered/Not Resolved]
  - Pelvic inflammatory disease [Unknown]
  - Sepsis [Unknown]
  - Cellulitis [Unknown]
  - Ovarian abscess [Unknown]
  - Obesity [Unknown]
  - Cervical cyst [Unknown]
  - Intra-abdominal fluid collection [Unknown]
  - Umbilical hernia [Unknown]
